FAERS Safety Report 20749244 (Version 1)
Quarter: 2022Q2

REPORT INFORMATION
  Report Type: Spontaneous
  Country: ES (occurrence: ES)
  Receive Date: 20220426
  Receipt Date: 20220426
  Transmission Date: 20220721
  Serious: Yes (Other)
  Sender: FDA-Public Use
  Company Number: ES-AMAROX PHARMA GMBH-AMR2021ES01478

PATIENT
  Age: 45 Year
  Sex: Male

DRUGS (5)
  1. TOPIRAMATE [Suspect]
     Active Substance: TOPIRAMATE
     Indication: Dizziness
     Dosage: 100 MILLIGRAM, ONCE A DAY, QD
     Route: 065
  2. ACETAZOLAMIDE [Suspect]
     Active Substance: ACETAZOLAMIDE
     Indication: Dizziness
     Dosage: 500 MILLIGRAM, ONCE A DAY, QD, DURING 8 DAYS
     Route: 065
  3. AMITRIPTYLINE [Concomitant]
     Active Substance: AMITRIPTYLINE
     Indication: Headache
     Dosage: 25 MILLIGRAM, ONCE A DAY, QD
     Route: 065
  4. FLUNARIZINE [Concomitant]
     Active Substance: FLUNARIZINE
     Indication: Headache
     Dosage: 10 MILLIGRAM, ONCE A DAY, QD, DURING 8 WEEKS
     Route: 065
  5. SUMATRIPTAN [Concomitant]
     Active Substance: SUMATRIPTAN
     Indication: Headache
     Dosage: 50 MG
     Route: 048

REACTIONS (4)
  - Dizziness [Recovering/Resolving]
  - Condition aggravated [Recovering/Resolving]
  - Gait disturbance [Recovering/Resolving]
  - Drug ineffective [Unknown]
